FAERS Safety Report 9664023 (Version 1)
Quarter: 2013Q4

REPORT INFORMATION
  Report Type: Spontaneous
  Country: US (occurrence: US)
  Receive Date: 20131101
  Receipt Date: 20131101
  Transmission Date: 20140711
  Serious: Yes (Hospitalization, Other)
  Sender: FDA-Public Use
  Company Number: US-BAYER-2013-133233

PATIENT
  Age: 50 Year
  Sex: Female
  Weight: 167.35 kg

DRUGS (4)
  1. YASMIN [Suspect]
     Indication: UTERINE HAEMORRHAGE
  2. HYDROCODONE/ACETAMINOPHEN [Concomitant]
  3. ERYTHROMYCIN [Concomitant]
  4. TYLENOL [PARACETAMOL] [Concomitant]

REACTIONS (1)
  - Deep vein thrombosis [None]
